FAERS Safety Report 10627101 (Version 1)
Quarter: 2014Q4

REPORT INFORMATION
  Report Type: Report from Study
  Country: BR (occurrence: BR)
  Receive Date: 20141204
  Receipt Date: 20141204
  Transmission Date: 20150529
  Serious: Yes (Other)
  Sender: FDA-Public Use
  Company Number: BR-BRISTOL-MYERS SQUIBB COMPANY-21677711

PATIENT
  Age: 65 Year
  Sex: Female
  Weight: 82 kg

DRUGS (4)
  1. ERBITUX [Suspect]
     Active Substance: CETUXIMAB
     Indication: COLON CANCER
     Dates: start: 201410
  2. IRINOTECAN [Concomitant]
     Active Substance: IRINOTECAN
  3. 5-FLUOROURACIL [Concomitant]
     Active Substance: FLUOROURACIL
  4. FOLINIC ACID [Concomitant]
     Active Substance: LEUCOVORIN

REACTIONS (11)
  - Petechiae [Unknown]
  - Formication [Unknown]
  - Headache [Unknown]
  - Muscular weakness [Unknown]
  - Immunodeficiency [Recovering/Resolving]
  - Labyrinthitis [Unknown]
  - Movement disorder [Unknown]
  - Dry skin [Unknown]
  - Sinusitis [Unknown]
  - Ear infection [Unknown]
  - Papule [Recovering/Resolving]
